FAERS Safety Report 7402881-6 (Version None)
Quarter: 2011Q2

REPORT INFORMATION
  Report Type: 
  Country: None (occurrence: None)
  Receive Date: 20110408
  Receipt Date: 20110106
  Transmission Date: 20111010
  Serious: No
  Sender: FDA-Public Use
  Company Number: US-BAYER-2011-030114

PATIENT
  Sex: Female
  Weight: 54 kg

DRUGS (4)
  1. ALEVE (CAPLET) [Suspect]
     Indication: NECK PAIN
     Dosage: CONSUMER TOOK 1 ALEVE AND 2 MORE 1 HOUR LATE. BOTTLE COUNT 250S
     Route: 048
     Dates: start: 20110106
  2. SPIRIVA [Concomitant]
  3. ROPINIROLE [Concomitant]
  4. IBUPROFEN [Concomitant]

REACTIONS (1)
  - NECK PAIN [None]
